FAERS Safety Report 10364557 (Version 1)
Quarter: 2014Q3

REPORT INFORMATION
  Report Type: Spontaneous
  Country: US (occurrence: None)
  Receive Date: 20140801
  Receipt Date: 20140801
  Transmission Date: 20150326
  Serious: Yes (Other)
  Sender: FDA-Public Use
  Company Number: SYM-2014-23754

PATIENT
  Age: 77 Year
  Sex: Female

DRUGS (1)
  1. XENAZINE [Suspect]
     Active Substance: TETRABENAZINE
     Indication: HUNTINGTON^S DISEASE

REACTIONS (3)
  - Headache [None]
  - Angina pectoris [None]
  - Suicidal ideation [None]

NARRATIVE: CASE EVENT DATE: 201406
